FAERS Safety Report 9095624 (Version 1)
Quarter: 2013Q1

REPORT INFORMATION
  Report Type: Spontaneous
  Country: US (occurrence: None)
  Receive Date: 20130122
  Receipt Date: 20130122
  Transmission Date: 20140127
  Serious: Yes (Hospitalization)
  Sender: FDA-Public Use
  Company Number: 2013-00014

PATIENT
  Age: 64 Year
  Sex: Male
  Weight: 58.06 kg

DRUGS (4)
  1. ZICAM COLD REMEDY RAPIDMELTS [Suspect]
     Indication: NASOPHARYNGITIS
     Dosage: ?1 RAPIDMELT ORALLY 3X DAILY
     Route: 048
     Dates: start: 20121229
  2. OXYGEN [Concomitant]
  3. DIGOXIN [Concomitant]
  4. UNKNOWN ANTIBIOTICS [Concomitant]

REACTIONS (2)
  - Heart rate increased [None]
  - Chronic obstructive pulmonary disease [None]
